FAERS Safety Report 25745733 (Version 1)
Quarter: 2025Q3

REPORT INFORMATION
  Report Type: Spontaneous
  Country: US (occurrence: US)
  Receive Date: 20250901
  Receipt Date: 20250901
  Transmission Date: 20251020
  Serious: No
  Sender: pharmaAND
  Company Number: US-Pharmaand-2024001053

PATIENT
  Age: 73 Year
  Sex: Female

DRUGS (8)
  1. PEGASYS [Suspect]
     Active Substance: PEGINTERFERON ALFA-2A
     Indication: Essential thrombocythaemia
     Route: 058
     Dates: start: 2017
  2. SYNTHROID [Concomitant]
     Active Substance: LEVOTHYROXINE SODIUM
     Indication: Autoimmune thyroiditis
  3. METFORMIN [Concomitant]
     Active Substance: METFORMIN HYDROCHLORIDE
     Indication: Type 2 diabetes mellitus
  4. fenifibrate [Concomitant]
  5. ATORVASTATIN [Concomitant]
     Active Substance: ATORVASTATIN
     Indication: Meningioma benign
  6. ASPIRIN [Concomitant]
     Active Substance: ASPIRIN
     Indication: Neoplasm malignant
  7. AMPICILLIN [Concomitant]
     Active Substance: AMPICILLIN
     Indication: Shoulder arthroplasty
  8. TIZANIDINE [Concomitant]
     Active Substance: TIZANIDINE
     Indication: Back pain

REACTIONS (4)
  - Off label use [Recovered/Resolved]
  - Essential thrombocythaemia [Recovered/Resolved]
  - Product dose omission issue [Recovered/Resolved]
  - Syringe issue [Recovered/Resolved]

NARRATIVE: CASE EVENT DATE: 20241002
